FAERS Safety Report 18270140 (Version 2)
Quarter: 2020Q3

REPORT INFORMATION
  Report Type: Spontaneous
  Country: US (occurrence: US)
  Receive Date: 20200915
  Receipt Date: 20200928
  Transmission Date: 20201103
  Serious: No
  Sender: FDA-Public Use
  Company Number: US-009507513-2009USA004310

PATIENT
  Sex: Female

DRUGS (3)
  1. FOLLISTIM AQ [Suspect]
     Active Substance: FOLLITROPIN
     Dosage: 225 INTERNATIONAL UNIT, HS
     Dates: start: 20200904, end: 20200906
  2. FOLLISTIM AQ [Suspect]
     Active Substance: FOLLITROPIN
     Dosage: 300 INTERNATIONAL UNIT, HS
     Dates: start: 20200908
  3. FOLLISTIM AQ [Suspect]
     Active Substance: FOLLITROPIN
     Dosage: 300 INTERNATIONAL UNIT, HS
     Dates: start: 20200907

REACTIONS (6)
  - Circumstance or information capable of leading to medication error [Unknown]
  - Device malfunction [Unknown]
  - Incorrect dose administered [Unknown]
  - No adverse event [Unknown]
  - Poor quality device used [Unknown]
  - Product use issue [Unknown]

NARRATIVE: CASE EVENT DATE: 202009
